FAERS Safety Report 25900810 (Version 1)
Quarter: 2025Q4

REPORT INFORMATION
  Report Type: Spontaneous
  Country: US (occurrence: None)
  Receive Date: 20251008
  Receipt Date: 20251008
  Transmission Date: 20260117
  Serious: Yes (Hospitalization)
  Sender: FDA-CTU
  Company Number: None

PATIENT
  Age: 34 Year
  Weight: 100.3 kg

DRUGS (1)
  1. ZEPBOUND [Suspect]
     Active Substance: TIRZEPATIDE
     Indication: Obesity
     Dosage: OTHER FREQUENCY : ONCE PER WEEK;?
     Route: 058

REACTIONS (7)
  - Nausea [None]
  - Vomiting [None]
  - Gastrooesophageal reflux disease [None]
  - Hiatus hernia [None]
  - Gastrointestinal disorder [None]
  - Drug intolerance [None]
  - Cystitis escherichia [None]

NARRATIVE: CASE EVENT DATE: 20251001
